FAERS Safety Report 4383278-2 (Version None)
Quarter: 2004Q2

REPORT INFORMATION
  Report Type: 
  Country: None (occurrence: None)
  Receive Date: 20040618
  Receipt Date: 20040607
  Transmission Date: 20050107
  Serious: Yes (Other)
  Sender: FDA-Public Use
  Company Number: CA-JNJFOC-20040602240

PATIENT
  Age: 60 Year
  Sex: Male
  Weight: 99.7913 kg

DRUGS (13)
  1. REMICADE [Suspect]
     Indication: RHEUMATOID ARTHRITIS
     Dosage: 300 MG, INTRAVENOUS
     Route: 042
     Dates: start: 20020125
  2. REMICADE [Suspect]
     Indication: RHEUMATOID ARTHRITIS
     Dosage: 300 MG, INTRAVENOUS
     Route: 042
     Dates: start: 20040227
  3. MTX (METHOTREXATE SODIUM) TABLETS [Concomitant]
  4. PREDNISONE TAB [Concomitant]
  5. FOLIC ACID [Concomitant]
  6. PLAQUENIL [Concomitant]
  7. MONITAN (ACEBUTOLOL HYDROCHLORIDE) [Concomitant]
  8. LOSEC (OMEPRAZOLE) [Concomitant]
  9. VIOXX [Concomitant]
  10. NORVASC (AMLODIPINE BESILATE) TABLETS [Concomitant]
  11. AMITRIPTYLINE (AMITRIPTYLINE) TABLETS [Concomitant]
  12. APO-HYDRO (HYDROCHLOROTHIAZIDE) [Concomitant]
  13. NEXIUM [Concomitant]

REACTIONS (1)
  - HODGKIN'S DISEASE [None]
